FAERS Safety Report 20783222 (Version 1)
Quarter: 2022Q2

REPORT INFORMATION
  Report Type: Spontaneous
  Country: US (occurrence: US)
  Receive Date: 20220504
  Receipt Date: 20220504
  Transmission Date: 20220720
  Serious: Yes (Other)
  Sender: FDA-Public Use
  Company Number: US-BAYER-2022A059720

PATIENT
  Age: 25 Year
  Sex: Female

DRUGS (1)
  1. MIRENA [Suspect]
     Active Substance: LEVONORGESTREL
     Dosage: 20?G/DAY
     Route: 015
     Dates: start: 20211101

REACTIONS (6)
  - Genital haemorrhage [None]
  - Feeling abnormal [None]
  - Abdominal pain [None]
  - Breast tenderness [None]
  - Back pain [None]
  - Swelling [None]

NARRATIVE: CASE EVENT DATE: 20220417
